FAERS Safety Report 9157279 (Version 1)
Quarter: 2013Q1

REPORT INFORMATION
  Report Type: Spontaneous
  Country: US (occurrence: None)
  Receive Date: 20130308
  Receipt Date: 20130308
  Transmission Date: 20140127
  Serious: Yes (Other)
  Sender: FDA-Public Use
  Company Number: None

PATIENT
  Age: 22 Year
  Sex: Female
  Weight: 47.63 kg

DRUGS (1)
  1. LEXAPRO [Suspect]
     Indication: NEGATIVE THOUGHTS
     Dates: start: 20130221

REACTIONS (4)
  - Dizziness [None]
  - Hallucination [None]
  - Disturbance in attention [None]
  - Feeling abnormal [None]
